FAERS Safety Report 24792503 (Version 1)
Quarter: 2024Q4

REPORT INFORMATION
  Report Type: Spontaneous
  Country: GB (occurrence: GB)
  Receive Date: 20241231
  Receipt Date: 20241231
  Transmission Date: 20250114
  Serious: Yes (Other)
  Sender: AUROBINDO
  Company Number: GB-MHRA-MED-202412171552325830-TKGZQ

PATIENT
  Age: 76 Year
  Sex: Male

DRUGS (2)
  1. PREDNISOLONE [Suspect]
     Active Substance: PREDNISOLONE
     Indication: Prostate cancer
     Dosage: 5 MILLIGRAM, ONCE A DAY [5MG - ONCE A DAY IN THE MORNING]
     Route: 065
  2. ABIRATERONE [Suspect]
     Active Substance: ABIRATERONE
     Indication: Prostate cancer
     Dosage: 1000 MILLIGRAM, ONCE A DAY [1000MG - ONCE A DAY ]
     Route: 065
     Dates: start: 20240919

REACTIONS (4)
  - Contusion [Unknown]
  - Joint swelling [Unknown]
  - Fatigue [Unknown]
  - Rash [Unknown]

NARRATIVE: CASE EVENT DATE: 20241216
